FAERS Safety Report 15276254 (Version 1)
Quarter: 2018Q3

REPORT INFORMATION
  Report Type: Spontaneous
  Country: US (occurrence: US)
  Receive Date: 20180728
  Receipt Date: 20180728
  Transmission Date: 20181010
  Serious: Yes (Hospitalization, Other)
  Sender: FDA-Public Use
  Company Number: None

PATIENT
  Age: 40 Year
  Sex: Female
  Weight: 63.5 kg

DRUGS (1)
  1. MIRENA [Suspect]
     Active Substance: LEVONORGESTREL
     Dates: start: 20120101, end: 20120215

REACTIONS (6)
  - Scar [None]
  - Pain [None]
  - Haemorrhage [None]
  - Ovarian cyst [None]
  - Salpingectomy [None]
  - Endometriosis [None]

NARRATIVE: CASE EVENT DATE: 20120101
